FAERS Safety Report 23771316 (Version 1)
Quarter: 2024Q2

REPORT INFORMATION
  Report Type: Spontaneous
  Country: GB (occurrence: GB)
  Receive Date: 20240423
  Receipt Date: 20240423
  Transmission Date: 20240715
  Serious: Yes (Other)
  Sender: FDA-Public Use
  Company Number: GB-CELLTRION INC.-2024GB009124

PATIENT

DRUGS (1)
  1. INFLIXIMAB [Suspect]
     Active Substance: INFLIXIMAB
     Indication: Product used for unknown indication
     Dosage: OVER 2 HOURS 8 WEEKLY MAINTENANCE DOSE

REACTIONS (2)
  - Liver function test abnormal [Recovered/Resolved]
  - Drug-induced liver injury [Unknown]
